FAERS Safety Report 16538206 (Version 1)
Quarter: 2019Q3

REPORT INFORMATION
  Report Type: Spontaneous
  Country: US (occurrence: US)
  Receive Date: 20190708
  Receipt Date: 20190708
  Transmission Date: 20191004
  Serious: No
  Sender: FDA-Public Use
  Company Number: US-SA-2019SA182249

PATIENT
  Age: 15 Year
  Sex: Female

DRUGS (6)
  1. EPINEPHRINE. [Concomitant]
     Active Substance: EPINEPHRINE
  2. DUPIXENT [Suspect]
     Active Substance: DUPILUMAB
     Indication: DERMATITIS ATOPIC
     Dosage: 600 MG, 1X
     Route: 058
     Dates: start: 20190619
  3. DEXMETHYLPHEN HYDROCHLORIDE [Concomitant]
  4. DOXEPIN [Concomitant]
     Active Substance: DOXEPIN
  5. TRIAMCINOLON [TRIAMCINOLONE] [Concomitant]
  6. MONTELUKAST [Concomitant]
     Active Substance: MONTELUKAST SODIUM

REACTIONS (1)
  - Dermatitis [Not Recovered/Not Resolved]

NARRATIVE: CASE EVENT DATE: 20190702
